FAERS Safety Report 9802569 (Version 1)
Quarter: 2014Q1

REPORT INFORMATION
  Report Type: Spontaneous
  Country: US (occurrence: US)
  Receive Date: 20140108
  Receipt Date: 20140108
  Transmission Date: 20141002
  Serious: Yes (Hospitalization, Other)
  Sender: FDA-Public Use
  Company Number: US-AMGEN-USASP2014000110

PATIENT
  Age: 58 Year
  Sex: Male

DRUGS (1)
  1. ENBREL [Suspect]
     Indication: RHEUMATOID ARTHRITIS
     Dosage: 50 MG, QWK
     Route: 065
     Dates: start: 2008

REACTIONS (12)
  - Joint destruction [Recovered/Resolved]
  - Gastrointestinal haemorrhage [Recovered/Resolved]
  - Syncope [Unknown]
  - Narcolepsy [Not Recovered/Not Resolved]
  - Hepatic encephalopathy [Not Recovered/Not Resolved]
  - Cataract [Unknown]
  - Joint crepitation [Not Recovered/Not Resolved]
  - Fall [Not Recovered/Not Resolved]
  - Confusional state [Not Recovered/Not Resolved]
  - Ammonia increased [Unknown]
  - Sleep disorder [Unknown]
  - Ascites [Unknown]
